FAERS Safety Report 9369007 (Version 4)
Quarter: 2013Q4

REPORT INFORMATION
  Report Type: Spontaneous
  Country: US (occurrence: US)
  Receive Date: 20130626
  Receipt Date: 20131028
  Transmission Date: 20140711
  Serious: Yes (Hospitalization)
  Sender: FDA-Public Use
  Company Number: US-BIOGENIDEC-2013BI055034

PATIENT
  Age: 43 Year
  Sex: Male

DRUGS (1)
  1. TYSABRI [Suspect]
     Indication: MULTIPLE SCLEROSIS
     Route: 042
     Dates: start: 20121129, end: 20130518

REACTIONS (6)
  - Confusional state [Unknown]
  - Multiple sclerosis relapse [Unknown]
  - Convulsion [Recovered/Resolved]
  - Dizziness [Unknown]
  - Aphasia [Unknown]
  - Eye pain [Unknown]
